FAERS Safety Report 11397637 (Version 1)
Quarter: 2015Q3

REPORT INFORMATION
  Report Type: Spontaneous
  Country: US (occurrence: US)
  Receive Date: 20150819
  Receipt Date: 20150819
  Transmission Date: 20151125
  Serious: No
  Sender: FDA-Public Use
  Company Number: US-BAYER-2015-403307

PATIENT
  Age: 80 Year
  Sex: Female
  Weight: 60.32 kg

DRUGS (2)
  1. ALEVE [Suspect]
     Active Substance: NAPROXEN SODIUM
     Indication: HEADACHE
     Dosage: 1/2 DF, QD (AS NEEDED, FOR LONGER THAN 10 DAYS CURRENTLY)
     Route: 048
  2. FLINTSTONES GUMMIES [Concomitant]
     Active Substance: VITAMINS

REACTIONS (1)
  - Product use issue [Unknown]
